FAERS Safety Report 23171150 (Version 1)
Quarter: 2023Q4

REPORT INFORMATION
  Report Type: Spontaneous
  Country: GB (occurrence: GB)
  Receive Date: 20231110
  Receipt Date: 20231110
  Transmission Date: 20240110
  Serious: Yes (Hospitalization, Other)
  Sender: FDA-Public Use
  Company Number: None

PATIENT
  Age: 71 Year
  Sex: Female
  Weight: 64 kg

DRUGS (2)
  1. REMICADE [Suspect]
     Active Substance: INFLIXIMAB
     Indication: Adverse drug reaction
     Dosage: 10MG SCHEDULE; ;
     Route: 041
     Dates: start: 20220101, end: 20220301
  2. REMICADE [Suspect]
     Active Substance: INFLIXIMAB
     Dosage: 10MG INCREASED FROM 5MG; ;
     Route: 041
     Dates: start: 20220101, end: 20220301

REACTIONS (2)
  - Systemic lupus erythematosus [Not Recovered/Not Resolved]
  - Malignant melanoma [Not Recovered/Not Resolved]

NARRATIVE: CASE EVENT DATE: 20220301
